FAERS Safety Report 5141367-9 (Version None)
Quarter: 2006Q4

REPORT INFORMATION
  Report Type: 
  Country: None (occurrence: None)
  Receive Date: 20061101
  Receipt Date: 20050824
  Transmission Date: 20070319
  Serious: Yes (Death)
  Sender: FDA-Public Use
  Company Number: US-GLAXOSMITHKLINE-A0571897A

PATIENT
  Age: 17 Year
  Sex: Male
  Weight: 95 kg

DRUGS (5)
  1. SEREVENT [Suspect]
     Indication: ASTHMA
     Dosage: 2PUFF TWICE PER DAY
     Route: 055
     Dates: start: 19980701, end: 19991023
  2. ALBUTEROL [Concomitant]
  3. TAGAMET [Concomitant]
  4. FLOVENT [Concomitant]
     Indication: ASTHMA
     Dosage: 3PUFF TWICE PER DAY
     Route: 055
  5. FLONASE [Concomitant]
     Route: 045

REACTIONS (15)
  - ACUTE PULMONARY OEDEMA [None]
  - AGGRESSION [None]
  - BREATH SOUNDS ABNORMAL [None]
  - CARDIO-RESPIRATORY ARREST [None]
  - DRUG INEFFECTIVE [None]
  - DYSPNOEA [None]
  - FLUSHING [None]
  - GASTROINTESTINAL HAEMORRHAGE [None]
  - HEPATOSPLENOMEGALY [None]
  - HYPERHIDROSIS [None]
  - LUNG HYPERINFLATION [None]
  - PULMONARY CONGESTION [None]
  - STATUS ASTHMATICUS [None]
  - TACHYCARDIA [None]
  - TACHYPNOEA [None]
